FAERS Safety Report 10262049 (Version 5)
Quarter: 2014Q3

REPORT INFORMATION
  Report Type: Report from Study
  Country: AT (occurrence: AT)
  Receive Date: 20140626
  Receipt Date: 20140819
  Transmission Date: 20150326
  Serious: Yes (Hospitalization, Other)
  Sender: FDA-Public Use
  Company Number: PHHY2014AT002693

PATIENT
  Sex: Female
  Weight: 62 kg

DRUGS (9)
  1. EVEROLIMUS [Suspect]
     Active Substance: EVEROLIMUS
     Indication: BREAST CANCER METASTATIC
     Dosage: 5 MG, DAILY
     Route: 048
     Dates: start: 20130909
  2. MEXALEN [Concomitant]
     Active Substance: LUBIPROSTONE
  3. EVEROLIMUS [Suspect]
     Active Substance: EVEROLIMUS
     Dosage: 10 MG, QD
     Dates: start: 20130923
  4. EXEMESTANE. [Suspect]
     Active Substance: EXEMESTANE
     Indication: BREAST CANCER METASTATIC
     Dosage: 25 MG, QD
     Dates: start: 201312
  5. DULCOLAX [Concomitant]
     Active Substance: BISACODYL OR DOCUSATE SODIUM
  6. XGEVA [Concomitant]
     Active Substance: DENOSUMAB
     Dates: start: 201308
  7. CAL D VITA [Concomitant]
     Dates: start: 201309
  8. HYDAL [Concomitant]
     Dosage: 1.3 MG, 3X DAILY AT INTERNAL PEAKS
     Route: 048
  9. EBRANTIL [Concomitant]
     Active Substance: URAPIDIL
     Dosage: 30 MG, 3X DAILY AT BLOOD PRESSURE OVER 160/80 MMHG SYST
     Route: 048

REACTIONS (12)
  - Diarrhoea [Recovered/Resolved]
  - Malignant neoplasm progression [Not Recovered/Not Resolved]
  - Venous thrombosis [Not Recovered/Not Resolved]
  - Nausea [Recovered/Resolved]
  - Vertigo [Unknown]
  - Musculoskeletal pain [Not Recovered/Not Resolved]
  - Hypertensive crisis [Recovered/Resolved]
  - Vomiting [Recovered/Resolved]
  - Arthropathy [Not Recovered/Not Resolved]
  - Bone pain [Recovering/Resolving]
  - Fatigue [Not Recovered/Not Resolved]
  - Asthenia [Recovering/Resolving]

NARRATIVE: CASE EVENT DATE: 2013
